FAERS Safety Report 19623741 (Version 4)
Quarter: 2021Q3

REPORT INFORMATION
  Report Type: Spontaneous
  Country: FR (occurrence: FR)
  Receive Date: 20210729
  Receipt Date: 20210902
  Transmission Date: 20211014
  Serious: Yes (Hospitalization, Other)
  Sender: FDA-Public Use
  Company Number: FR-AUROBINDO-AUR-APL-2021-032001

PATIENT
  Age: 92 Year
  Sex: Female
  Weight: 72.2 kg

DRUGS (11)
  1. AMLODIPINE [Suspect]
     Active Substance: AMLODIPINE BESYLATE
     Indication: HYPERTENSION
     Dosage: 1 DOSAGE FORM, ONCE A DAY (IN THE LONG TERM)
     Route: 048
  2. LORAZEPAM. [Suspect]
     Active Substance: LORAZEPAM
     Indication: ANXIETY
     Dosage: 1 DOSAGE FORM, ONCE A DAY (IN THE LONG TERM)
     Route: 048
  3. DAFALGAN [Concomitant]
     Active Substance: ACETAMINOPHEN
     Indication: PAIN
     Dosage: 8 DOSAGE FORM, ONCE A DAY (IN THE LONG TERM)
     Route: 048
  4. PERINDOPRIL ARROW LAB TABLETS 2MG [Suspect]
     Active Substance: PERINDOPRIL ERBUMINE
     Indication: HYPERTENSION
     Dosage: 1 DOSAGE FORM, ONCE A DAY (IN THE LONG TERM)
     Route: 048
  5. PRAVASTATIN ARROW TABLETS 20MG [Suspect]
     Active Substance: PRAVASTATIN
     Indication: CAROTID ARTERIOSCLEROSIS
     Dosage: 1 DOSAGE FORM, ONCE A DAY (IN THE LONG TERM)
     Route: 048
  6. L THYROXIN HENNING [Suspect]
     Active Substance: LEVOTHYROXINE SODIUM
     Indication: THYROID DISORDER
     Dosage: 75 MICROGRAM, EVERY OTHER DAY (IN THE LONG TERM)
     Route: 048
  7. CLOPIDOGREL ARROW 75 MG FILM COATED TABLET [Suspect]
     Active Substance: CLOPIDOGREL BISULFATE
     Indication: CAROTID ARTERIOSCLEROSIS
     Dosage: 1 DOSAGE FORM, ONCE A DAY (IN THE LONG TERM)
     Route: 048
  8. AMOXICILLIN. [Concomitant]
     Active Substance: AMOXICILLIN
     Indication: PRODUCT USED FOR UNKNOWN INDICATION
     Dosage: 3 GRAM, ONCE A DAY
     Route: 048
     Dates: start: 20201002, end: 20201009
  9. DIFFU K [Concomitant]
     Active Substance: POTASSIUM CHLORIDE
     Indication: HYPOKALAEMIA
     Dosage: 2 DOSAGE FORM, ONCE A DAY
     Route: 048
     Dates: start: 20210320
  10. FUROSEMIDE ARROW 40 MG TABLETS [Suspect]
     Active Substance: FUROSEMIDE
     Indication: HYPERTENSION
     Dosage: 1 DOSAGE FORM, ONCE A DAY
     Dates: start: 20210320
  11. L THYROXIN HENNING [Suspect]
     Active Substance: LEVOTHYROXINE SODIUM
     Dosage: 100 MICROGRAM, EVERY OTHER DAY (IN THE LONG TERM)
     Route: 048

REACTIONS (1)
  - Haemolytic anaemia [Not Recovered/Not Resolved]

NARRATIVE: CASE EVENT DATE: 20210421
